FAERS Safety Report 16145558 (Version 1)
Quarter: 2019Q2

REPORT INFORMATION
  Report Type: Spontaneous
  Country: US (occurrence: US)
  Receive Date: 20190401
  Receipt Date: 20190401
  Transmission Date: 20190711
  Serious: Yes (Other)
  Sender: FDA-Public Use
  Company Number: None

PATIENT
  Age: 29 Year
  Sex: Female
  Weight: 65.25 kg

DRUGS (3)
  1. CIPROFLOXACIN 500 MG TAB CIPROFLOXACIN HCL 500 MG [Suspect]
     Active Substance: CIPROFLOXACIN
     Indication: LYMPHADENOPATHY
     Dosage: ?          QUANTITY:14 TABLET(S);?
     Route: 048
  2. MELOXICAM. [Concomitant]
     Active Substance: MELOXICAM
  3. CIPROFLOXACIN 500 MG TAB CIPROFLOXACIN HCL 500 MG [Suspect]
     Active Substance: CIPROFLOXACIN
     Indication: EAR INFECTION
     Dosage: ?          QUANTITY:14 TABLET(S);?
     Route: 048

REACTIONS (10)
  - Pain in extremity [None]
  - Loss of personal independence in daily activities [None]
  - Burning sensation [None]
  - Muscle spasms [None]
  - Loss of control of legs [None]
  - Back pain [None]
  - Arthralgia [None]
  - Musculoskeletal pain [None]
  - Pain [None]
  - Ligament rupture [None]

NARRATIVE: CASE EVENT DATE: 20190125
